FAERS Safety Report 13423269 (Version 11)
Quarter: 2017Q4

REPORT INFORMATION
  Report Type: Spontaneous
  Country: US (occurrence: US)
  Receive Date: 20170410
  Receipt Date: 20171211
  Transmission Date: 20180320
  Serious: Yes (Congenital Anomaly, Other)
  Sender: FDA-Public Use
  Company Number: PHEH2017US010015

PATIENT
  Sex: Male

DRUGS (5)
  1. ZOFRAN ODT [Suspect]
     Active Substance: ONDANSETRON HYDROCHLORIDE
     Indication: FOETAL EXPOSURE DURING PREGNANCY
     Route: 064
  2. ONDANSETRONE DR. REDDY^S [Suspect]
     Active Substance: ONDANSETRON HYDROCHLORIDE
     Indication: FOETAL EXPOSURE DURING PREGNANCY
     Dosage: MOTHER DOSE: 08 MG, UNK
     Route: 064
  3. ZOFRAN [Suspect]
     Active Substance: ONDANSETRON HYDROCHLORIDE
     Indication: FOETAL EXPOSURE DURING PREGNANCY
     Route: 064
  4. ZOFRAN [Suspect]
     Active Substance: ONDANSETRON HYDROCHLORIDE
     Indication: FOETAL EXPOSURE DURING PREGNANCY
     Route: 064
  5. ONDANSETRON [Suspect]
     Active Substance: ONDANSETRON
     Indication: FOETAL EXPOSURE DURING PREGNANCY
     Dosage: MOTHER DOSE: 08 MG, UNK
     Route: 064

REACTIONS (95)
  - Atrial septal defect [Unknown]
  - Laryngomalacia [Unknown]
  - Emotional distress [Unknown]
  - Gastrooesophageal reflux disease [Recovered/Resolved]
  - Rhinorrhoea [Unknown]
  - Rhinitis [Unknown]
  - Upper respiratory tract infection [Recovered/Resolved]
  - Bacterial infection [Unknown]
  - Craniofacial deformity [Unknown]
  - Optic nerve hypoplasia [Recovered/Resolved]
  - Pulmonary artery stenosis congenital [Unknown]
  - Right ventricular dilatation [Unknown]
  - Selective eating disorder [Recovered/Resolved]
  - Hepatomegaly [Recovered/Resolved]
  - Wheezing [Unknown]
  - Vomiting [Unknown]
  - Diarrhoea [Unknown]
  - Pyrexia [Unknown]
  - Urticaria [Unknown]
  - Constipation [Unknown]
  - Intestinal malrotation [Unknown]
  - Bronchiolitis [Recovering/Resolving]
  - Adenoiditis [Unknown]
  - Leukopenia [Unknown]
  - Cough [Recovering/Resolving]
  - Eustachian tube dysfunction [Unknown]
  - Weight increased [Unknown]
  - Hypoacusis [Unknown]
  - Gastroenteritis [Unknown]
  - Dermatitis [Unknown]
  - Bone deformity [Unknown]
  - Gastrointestinal malformation [Unknown]
  - Pulmonary valve stenosis congenital [Unknown]
  - Skull malformation [Unknown]
  - Gross motor delay [Unknown]
  - Acute respiratory failure [Recovered/Resolved]
  - Ventricular hypertrophy [Unknown]
  - Pain [Unknown]
  - Decreased appetite [Unknown]
  - Dysphagia [Unknown]
  - Foreign body in gastrointestinal tract [Unknown]
  - Ear canal stenosis [Unknown]
  - Nausea [Unknown]
  - Dysmorphism [Unknown]
  - Failure to thrive [Unknown]
  - Pneumonia klebsiella [Unknown]
  - Delayed myelination [Unknown]
  - Sepsis [Unknown]
  - Developmental delay [Unknown]
  - Injury [Unknown]
  - Nasal congestion [Unknown]
  - Sneezing [Unknown]
  - Nasopharyngitis [Unknown]
  - Cyanosis [Unknown]
  - Middle ear effusion [Unknown]
  - Stridor [Unknown]
  - Cytogenetic abnormality [Unknown]
  - Cryptorchism [Unknown]
  - Trisomy 21 [Unknown]
  - Convulsion neonatal [Unknown]
  - Otorrhoea [Unknown]
  - Eyelid oedema [Unknown]
  - Molluscum contagiosum [Unknown]
  - Colitis [Unknown]
  - Blepharophimosis [Unknown]
  - Asthma [Recovering/Resolving]
  - Dyspnoea [Unknown]
  - Congenital cardiovascular anomaly [Unknown]
  - Respiratory tract malformation [Unknown]
  - Congenital genital malformation [Unknown]
  - Plagiocephaly [Unknown]
  - Left-to-right cardiac shunt [Unknown]
  - Congenital central nervous system anomaly [Unknown]
  - Synostosis [Unknown]
  - Craniosynostosis [Unknown]
  - Partial seizures [Unknown]
  - Otitis media chronic [Unknown]
  - Wound infection [Recovered/Resolved]
  - Sinusitis [Unknown]
  - Eczema [Unknown]
  - Upper-airway cough syndrome [Unknown]
  - Visual pathway disorder [Unknown]
  - Cardiac murmur [Unknown]
  - Rash [Not Recovered/Not Resolved]
  - Deafness bilateral [Unknown]
  - Focal dyscognitive seizures [Unknown]
  - Choking [Unknown]
  - Generalised tonic-clonic seizure [Unknown]
  - Foetal exposure during pregnancy [Unknown]
  - Torticollis [Unknown]
  - Adenoidal hypertrophy [Unknown]
  - Hypotonia [Unknown]
  - Language disorder [Unknown]
  - Urinary tract infection [Unknown]
  - Poor feeding infant [Unknown]
